FAERS Safety Report 23898751 (Version 1)
Quarter: 2024Q2

REPORT INFORMATION
  Report Type: Report from Study
  Country: GB (occurrence: GB)
  Receive Date: 20240525
  Receipt Date: 20240525
  Transmission Date: 20240716
  Serious: Yes (Hospitalization)
  Sender: FDA-Public Use
  Company Number: GB-ABBVIE-19P-167-2680258-00

PATIENT
  Age: 16 Year
  Sex: Male
  Weight: 32.7 kg

DRUGS (5)
  1. HUMIRA [Suspect]
     Active Substance: ADALIMUMAB
     Indication: Crohn^s disease
     Route: 058
     Dates: start: 20150413, end: 20160626
  2. HUMIRA [Suspect]
     Active Substance: ADALIMUMAB
     Route: 058
     Dates: start: 20160626, end: 20181126
  3. HUMIRA [Suspect]
     Active Substance: ADALIMUMAB
     Route: 058
     Dates: start: 20181224
  4. MORPHINE SULFATE [Concomitant]
     Active Substance: MORPHINE SULFATE
     Indication: Analgesic therapy
     Dosage: ONE DOSE -FREQUENCY
     Route: 041
     Dates: start: 20181203, end: 20181203
  5. ONDANSETRON [Concomitant]
     Active Substance: ONDANSETRON
     Indication: Antiemetic supportive care
     Dosage: ONE DOSE-FREQUENCY
     Route: 040
     Dates: start: 20181203, end: 20181203

REACTIONS (1)
  - Ileal stenosis [Recovered/Resolved]

NARRATIVE: CASE EVENT DATE: 20181203
